FAERS Safety Report 8965308 (Version 1)
Quarter: 2012Q4

REPORT INFORMATION
  Report Type: 
  Country: US (occurrence: US)
  Receive Date: 20121213
  Receipt Date: 20121213
  Transmission Date: 20130627
  Serious: Yes (Other)
  Sender: FDA-Public Use
  Company Number: US-BAYER-2012-127950

PATIENT
  Age: 31 Year
  Sex: Female

DRUGS (1)
  1. AVELOX [Suspect]
     Indication: PRODUCT USED FOR UNKNOWN INDICATION
     Dosage: 400 mg, QD
     Route: 048
     Dates: start: 2005, end: 2005

REACTIONS (2)
  - Tachycardia [Recovered/Resolved]
  - Rash generalised [Recovered/Resolved]
